FAERS Safety Report 21805670 (Version 1)
Quarter: 2023Q1

REPORT INFORMATION
  Report Type: Spontaneous
  Country: US (occurrence: US)
  Receive Date: 20230102
  Receipt Date: 20230102
  Transmission Date: 20230418
  Serious: No
  Sender: FDA-Public Use
  Company Number: US-SA-SAC20221230000923

PATIENT
  Sex: Female

DRUGS (4)
  1. DUPIXENT [Suspect]
     Active Substance: DUPILUMAB
     Indication: Dermatitis
     Dosage: 300 MG, QOW
     Route: 058
     Dates: start: 20220322
  2. DICLOFENAC [Concomitant]
     Active Substance: DICLOFENAC
  3. PROGESTERONE [Concomitant]
     Active Substance: PROGESTERONE
  4. SIMVASTATIN [Concomitant]
     Active Substance: SIMVASTATIN

REACTIONS (3)
  - Dry skin [Unknown]
  - Nasopharyngitis [Unknown]
  - Product use in unapproved indication [Unknown]
